FAERS Safety Report 4788207-5 (Version None)
Quarter: 2005Q3

REPORT INFORMATION
  Report Type: 
  Country: None (occurrence: None)
  Receive Date: 20050920
  Receipt Date: 20050706
  Transmission Date: 20060218
  Serious: Yes (Other)
  Sender: FDA-Public Use
  Company Number: PHEH2005US07462

PATIENT
  Age: 78 Year
  Sex: Female

DRUGS (9)
  1. DIOVAN [Suspect]
     Indication: HYPERTENSION
     Dosage: 160 MG, QD, ORAL
     Route: 048
  2. NORVASC [Concomitant]
  3. COREG (CARVEDIOL) [Concomitant]
  4. PRANDIN ^NOVO NORDISK^ (REPAGLINIDE) [Concomitant]
  5. HUMULIN (INSULIN HUMAN, INSULIN ISOPHANE, HUMAN BIOSYNTHETIC) [Concomitant]
  6. LIPITOR /NET (ATORVASTATIN CALCIUM) [Concomitant]
  7. SYNTHROID [Concomitant]
  8. DIGOXIN [Concomitant]
  9. XANAX [Concomitant]

REACTIONS (1)
  - BLOOD PRESSURE INCREASED [None]
